FAERS Safety Report 20009507 (Version 1)
Quarter: 2021Q4

REPORT INFORMATION
  Report Type: Spontaneous
  Country: US (occurrence: US)
  Receive Date: 20211028
  Receipt Date: 20211028
  Transmission Date: 20220303
  Serious: Yes (Other)
  Sender: FDA-Public Use
  Company Number: None

PATIENT
  Age: 30 Year
  Sex: Male
  Weight: 72.9 kg

DRUGS (3)
  1. LEVOFLOXACIN [Suspect]
     Active Substance: LEVOFLOXACIN
     Indication: Prostatitis
     Route: 048
     Dates: start: 20200903, end: 20200930
  2. ZYRTEC [Concomitant]
     Active Substance: CETIRIZINE HYDROCHLORIDE
  3. RESTASIS [Concomitant]
     Active Substance: CYCLOSPORINE

REACTIONS (11)
  - Pain in extremity [None]
  - Muscle twitching [None]
  - Tendon pain [None]
  - Tendonitis [None]
  - Neuropathy peripheral [None]
  - Back disorder [None]
  - Arthropathy [None]
  - Dysphagia [None]
  - Panic attack [None]
  - Memory impairment [None]
  - Feeling abnormal [None]

NARRATIVE: CASE EVENT DATE: 20200927
